FAERS Safety Report 8436930-3 (Version None)
Quarter: 2012Q2

REPORT INFORMATION
  Report Type: 
  Country: None (occurrence: None)
  Receive Date: 20120611
  Receipt Date: 20120611
  Transmission Date: 20120825
  Serious: Yes (Other)
  Sender: FDA-Public Use
  Company Number: None

PATIENT
  Age: 42 Year
  Sex: Female
  Weight: 111.1313 kg

DRUGS (1)
  1. CYMBALTA [Suspect]

REACTIONS (6)
  - DIZZINESS [None]
  - CRYING [None]
  - CONFUSIONAL STATE [None]
  - MYALGIA [None]
  - FEELING ABNORMAL [None]
  - ABDOMINAL PAIN UPPER [None]
